FAERS Safety Report 17088930 (Version 18)
Quarter: 2022Q2

REPORT INFORMATION
  Report Type: Report from Study
  Country: US (occurrence: US)
  Receive Date: 20191128
  Receipt Date: 20220614
  Transmission Date: 20220721
  Serious: Yes (Hospitalization, Other)
  Sender: FDA-Public Use
  Company Number: US-SHIRE-US201940122

PATIENT
  Age: 91 Year
  Sex: Female
  Weight: 68.934 kg

DRUGS (44)
  1. HUMAN IMMUNOGLOBULIN G [Suspect]
     Active Substance: HUMAN IMMUNOGLOBULIN G
     Indication: Immunodeficiency common variable
     Dosage: 25 GRAM, Q4WEEKS
     Route: 042
     Dates: start: 20190701
  2. HUMAN IMMUNOGLOBULIN G [Suspect]
     Active Substance: HUMAN IMMUNOGLOBULIN G
     Dosage: 25 GRAM, Q4WEEKS
     Route: 042
     Dates: start: 20190703
  3. HUMAN IMMUNOGLOBULIN G [Suspect]
     Active Substance: HUMAN IMMUNOGLOBULIN G
     Dosage: 25 GRAM, Q4WEEKS
     Route: 042
     Dates: start: 20190703
  4. HUMAN IMMUNOGLOBULIN G [Suspect]
     Active Substance: HUMAN IMMUNOGLOBULIN G
     Dosage: 25 GRAM, Q4WEEKS
     Route: 042
     Dates: start: 20190703
  5. FLAGYL [Suspect]
     Active Substance: METRONIDAZOLE\METRONIDAZOLE HYDROCHLORIDE
     Indication: Product used for unknown indication
     Route: 065
  6. NITROSTAT [Concomitant]
     Active Substance: NITROGLYCERIN
     Route: 065
  7. HYDROXYZINE HYDROCHLORIDE [Concomitant]
     Active Substance: HYDROXYZINE HYDROCHLORIDE
  8. TRAZODONE HCL [Concomitant]
     Active Substance: TRAZODONE HYDROCHLORIDE
  9. BUSPIRONE [Concomitant]
     Active Substance: BUSPIRONE HYDROCHLORIDE
  10. ACETAMINOPHEN [Concomitant]
     Active Substance: ACETAMINOPHEN
  11. DIPHENHYDRAMINE [Concomitant]
     Active Substance: DIPHENHYDRAMINE
  12. HEPARIN [Concomitant]
     Active Substance: HEPARIN SODIUM
  13. LIDOCAINE [Concomitant]
     Active Substance: LIDOCAINE
  14. SODIUM CHLORIDE [Concomitant]
     Active Substance: SODIUM CHLORIDE
  15. EPINEPHRINE [Concomitant]
     Active Substance: EPINEPHRINE
  16. MONTELUKAST [Concomitant]
     Active Substance: MONTELUKAST SODIUM
  17. ESCITALOPRAM [Concomitant]
     Active Substance: ESCITALOPRAM OXALATE
  18. LEVOTHYROXINE SODIUM [Concomitant]
     Active Substance: LEVOTHYROXINE SODIUM
  19. FUROSEMIDE [Concomitant]
     Active Substance: FUROSEMIDE
  20. CALCIUM + MAGNESIUM + ZINK [Concomitant]
  21. VITAMIN D3 [Concomitant]
     Active Substance: CHOLECALCIFEROL
  22. PANTOPRAZOLE SODIUM [Concomitant]
     Active Substance: PANTOPRAZOLE SODIUM
  23. IRON [Concomitant]
     Active Substance: IRON
  24. ISOSORBIDE [Concomitant]
     Active Substance: ISOSORBIDE
  25. XARELTO [Concomitant]
     Active Substance: RIVAROXABAN
  26. POTASSIUM CHLORIDE [Concomitant]
     Active Substance: POTASSIUM CHLORIDE
  27. NORVASC [Concomitant]
     Active Substance: AMLODIPINE BESYLATE
  28. METOPROLOL [Concomitant]
     Active Substance: METOPROLOL
  29. NITROGLYCERIN [Concomitant]
     Active Substance: NITROGLYCERIN
     Indication: Chest pain
     Route: 065
  30. POTASSIUM [Concomitant]
     Active Substance: POTASSIUM
  31. COLESTIPOL [Concomitant]
     Active Substance: COLESTIPOL
     Route: 065
  32. LOPRESSOR [Concomitant]
     Active Substance: METOPROLOL TARTRATE
  33. OLOPATADINE HYDROCHLORIDE [Concomitant]
     Active Substance: OLOPATADINE HYDROCHLORIDE
  34. IPRATROPIUM BROMIDE [Concomitant]
     Active Substance: IPRATROPIUM BROMIDE
  35. SUCRALFATE [Concomitant]
     Active Substance: SUCRALFATE
  36. FLUTICASONE PROPIONATE [Concomitant]
     Active Substance: FLUTICASONE PROPIONATE
  37. LASIX [Concomitant]
     Active Substance: FUROSEMIDE
  38. PROBIOTICS NOS [Concomitant]
     Active Substance: PROBIOTICS NOS
  39. ALOE [Concomitant]
     Active Substance: ALOE
  40. MACROBID [Concomitant]
     Active Substance: NITROFURANTOIN\NITROFURANTOIN MONOHYDRATE
     Route: 065
  41. NITROSTAT [Concomitant]
     Active Substance: NITROGLYCERIN
     Route: 065
  42. ESCITALOPRAM OXALATE [Concomitant]
     Active Substance: ESCITALOPRAM OXALATE
  43. BUSPIRONE HCL [Concomitant]
     Active Substance: BUSPIRONE HYDROCHLORIDE
  44. MONTELUKAST SODIUM [Concomitant]
     Active Substance: MONTELUKAST SODIUM

REACTIONS (39)
  - Myocardial infarction [Unknown]
  - Hypertension [Unknown]
  - Atypical pneumonia [Unknown]
  - Diverticulitis [Unknown]
  - Infection [Unknown]
  - Presyncope [Recovered/Resolved]
  - Oral pain [Unknown]
  - Fungal infection [Unknown]
  - Urinary tract infection [Unknown]
  - Cystitis [Recovering/Resolving]
  - Ear infection [Recovering/Resolving]
  - Nasopharyngitis [Unknown]
  - Eye pruritus [Unknown]
  - Cystitis [Unknown]
  - Haemorrhoidal haemorrhage [Unknown]
  - Bladder spasm [Unknown]
  - Ear pain [Unknown]
  - Sinusitis [Recovering/Resolving]
  - Infusion related reaction [Unknown]
  - Chest pain [Recovered/Resolved]
  - Dizziness [Recovered/Resolved]
  - Dyspnoea [Recovered/Resolved]
  - Blood pressure increased [Unknown]
  - Diarrhoea [Unknown]
  - Nausea [Recovered/Resolved]
  - Nasal congestion [Unknown]
  - Rhinorrhoea [Unknown]
  - Fatigue [Unknown]
  - Asthenia [Unknown]
  - Urticaria [Unknown]
  - Malaise [Unknown]
  - Tooth extraction [Unknown]
  - Unevaluable event [Unknown]
  - Dysuria [Unknown]
  - Sciatica [Unknown]
  - Headache [Unknown]
  - Pain [Unknown]
  - Tenderness [Unknown]
  - Back pain [Unknown]

NARRATIVE: CASE EVENT DATE: 20191202
